FAERS Safety Report 10754457 (Version 1)
Quarter: 2015Q1

REPORT INFORMATION
  Report Type: Spontaneous
  Country: US (occurrence: US)
  Receive Date: 20150202
  Receipt Date: 20150202
  Transmission Date: 20150721
  Serious: Yes (Other)
  Sender: FDA-Public Use
  Company Number: US-UNITED THERAPEUTICS-UNT-2014-012273

PATIENT
  Age: 46 Year
  Sex: Female
  Weight: 77.98 kg

DRUGS (2)
  1. REMODULIN [Suspect]
     Active Substance: TREPROSTINIL
     Indication: PULMONARY ARTERIAL HYPERTENSION
     Dosage: 0.070 ?G/KG/MIN, CONTINUING
     Route: 058
     Dates: start: 20030815
  2. REMODULIN [Suspect]
     Active Substance: TREPROSTINIL
     Dosage: 0.070 ?G/KG/MIN, CONTINUING
     Route: 058
     Dates: start: 20030815

REACTIONS (13)
  - Dizziness [Unknown]
  - Infusion site erythema [Unknown]
  - Infusion site pain [Unknown]
  - Infusion site oedema [Unknown]
  - Fall [Unknown]
  - Device issue [Unknown]
  - Syncope [Unknown]
  - Infusion site haematoma [Unknown]
  - Infusion site induration [Unknown]
  - Drug dose omission [Unknown]
  - Laceration [Unknown]
  - Cardiac failure [Unknown]
  - Headache [Unknown]

NARRATIVE: CASE EVENT DATE: 201412
